FAERS Safety Report 4395266-0 (Version None)
Quarter: 2004Q3

REPORT INFORMATION
  Report Type: 
  Country: None (occurrence: None)
  Receive Date: 20040706
  Receipt Date: 20040622
  Transmission Date: 20050211
  Serious: Yes (Death, Hospitalization)
  Sender: FDA-Public Use
  Company Number: 2004220931NL

PATIENT
  Age: 83 Year
  Sex: Male

DRUGS (1)
  1. FARMORUBICINE RTU (EPIRUBICIN HYDROCHLORIDE) SOLUTION, STERILE [Suspect]
     Indication: BLADDER CANCER
     Dosage: 80MG, SINGLE, INTRAVESICULAR

REACTIONS (5)
  - BLADDER MASS [None]
  - GENERAL PHYSICAL HEALTH DETERIORATION [None]
  - ILEUS PARALYTIC [None]
  - MULTI-ORGAN FAILURE [None]
  - POST PROCEDURAL COMPLICATION [None]
